FAERS Safety Report 21386890 (Version 1)
Quarter: 2022Q3

REPORT INFORMATION
  Report Type: Spontaneous
  Country: VN (occurrence: VN)
  Receive Date: 20220928
  Receipt Date: 20220928
  Transmission Date: 20221027
  Serious: Yes (Other)
  Sender: FDA-Public Use
  Company Number: VN-ELI_LILLY_AND_COMPANY-VN202209010627

PATIENT
  Sex: Male

DRUGS (3)
  1. ALIMTA [Suspect]
     Active Substance: PEMETREXED DISODIUM
     Indication: Non-small cell lung cancer
     Dosage: 500 MG/M2, OTHER (ON DAY 1)
     Route: 042
  2. PLATINUM [Concomitant]
     Active Substance: PLATINUM
     Indication: Non-small cell lung cancer
     Dosage: 300 MG/M2, OTHER (ON DAY 1)
     Route: 042
  3. VITAMIN B12 + FOLIC ACID [Concomitant]
     Indication: Product used for unknown indication
     Dosage: UNK, CYCLICAL (21-DAY CYCLE)

REACTIONS (5)
  - Pulmonary fibrosis [Unknown]
  - Pulmonary mass [Unknown]
  - Pneumothorax [Unknown]
  - Bronchiectasis [Unknown]
  - Traumatic lung injury [Unknown]
